FAERS Safety Report 14133926 (Version 1)
Quarter: 2017Q4

REPORT INFORMATION
  Report Type: Spontaneous
  Country: FR (occurrence: FR)
  Receive Date: 20171026
  Receipt Date: 20171026
  Transmission Date: 20180321
  Serious: Yes (Hospitalization)
  Sender: FDA-Public Use
  Company Number: FR-LUNDBECK-DKLU2039100

PATIENT
  Sex: Male

DRUGS (8)
  1. URBANYL [Suspect]
     Active Substance: CLOBAZAM
     Indication: SUICIDE ATTEMPT
     Route: 048
     Dates: start: 20170820, end: 20170820
  2. ACETYLLEUCINE [Suspect]
     Active Substance: ACETYLLEUCINE
     Indication: SUICIDE ATTEMPT
     Route: 048
     Dates: start: 20170820, end: 20170820
  3. IBUPROFEN. [Suspect]
     Active Substance: IBUPROFEN
     Indication: SUICIDE ATTEMPT
     Route: 048
     Dates: start: 20170820, end: 20170820
  4. COCAINE [Suspect]
     Active Substance: COCAINE
     Indication: PRODUCT USED FOR UNKNOWN INDICATION
     Route: 065
  5. LORAZEPAM. [Suspect]
     Active Substance: LORAZEPAM
     Indication: SUICIDE ATTEMPT
     Route: 048
     Dates: start: 20170820, end: 20170820
  6. BROMAZEPAM [Suspect]
     Active Substance: BROMAZEPAM
     Indication: SUICIDE ATTEMPT
     Route: 048
     Dates: start: 20170820, end: 20170820
  7. NIFLURIL [Suspect]
     Active Substance: MORNIFLUMATE
     Indication: SUICIDE ATTEMPT
     Route: 048
     Dates: start: 20170820, end: 20170820
  8. THERALENE [Suspect]
     Active Substance: TRIMEPRAZINE
     Indication: SUICIDE ATTEMPT
     Route: 048
     Dates: start: 20170820, end: 20170820

REACTIONS (6)
  - Liver injury [Recovered/Resolved]
  - Loss of consciousness [Recovered/Resolved]
  - Tachycardia [Recovered/Resolved]
  - Intentional overdose [Unknown]
  - Diabetes insipidus [Recovered/Resolved]
  - Acute kidney injury [Recovered/Resolved]
